FAERS Safety Report 17220213 (Version 1)
Quarter: 2019Q4

REPORT INFORMATION
  Report Type: Spontaneous
  Country: TR (occurrence: TR)
  Receive Date: 20191231
  Receipt Date: 20191231
  Transmission Date: 20200122
  Serious: Yes (Other)
  Sender: FDA-Public Use
  Company Number: TR-GILEAD-2019-0444715

PATIENT
  Age: 37 Year
  Sex: Male

DRUGS (1)
  1. GENVOYA [Suspect]
     Active Substance: COBICISTAT\ELVITEGRAVIR\EMTRICITABINE\TENOFOVIR ALAFENAMIDE FUMARATE
     Indication: HIV INFECTION
     Dosage: UNK
     Route: 065
     Dates: start: 20190212

REACTIONS (5)
  - Drug ineffective [Unknown]
  - Genotype drug resistance test positive [Unknown]
  - Treatment noncompliance [Unknown]
  - Lymphoma [Unknown]
  - Blood HIV RNA increased [Unknown]
